FAERS Safety Report 25324565 (Version 1)
Quarter: 2025Q2

REPORT INFORMATION
  Report Type: Spontaneous
  Country: US (occurrence: None)
  Receive Date: 20250515
  Receipt Date: 20250515
  Transmission Date: 20250717
  Serious: No
  Sender: FDA-CTU
  Company Number: None

PATIENT
  Sex: Female

DRUGS (3)
  1. ZEJULA [Suspect]
     Active Substance: NIRAPARIB
     Dosage: 1 MG DAILY ORAL
     Route: 048
     Dates: start: 20250325, end: 20250422
  2. GLYCERIN SUPPOSITORY [Suspect]
     Active Substance: GLYCERIN
     Dates: start: 20250325, end: 20250422
  3. MILK OF MAGNESIA [Suspect]
     Active Substance: MAGNESIUM HYDROXIDE

REACTIONS (5)
  - Constipation [None]
  - Vomiting [None]
  - Retching [None]
  - Dyspnoea [None]
  - Mobility decreased [None]
